FAERS Safety Report 10041308 (Version 2)
Quarter: 2014Q2

REPORT INFORMATION
  Report Type: Spontaneous
  Country: NO (occurrence: NO)
  Receive Date: 20140327
  Receipt Date: 20140402
  Transmission Date: 20141212
  Serious: Yes (Hospitalization)
  Sender: FDA-Public Use
  Company Number: NO-ASTRAZENECA-2014SE20005

PATIENT
  Age: 1869 Day
  Sex: Female
  Weight: 20 kg

DRUGS (1)
  1. XYLOCAINE [Suspect]
     Indication: LOCAL ANAESTHESIA
     Dosage: 400 MG IN TOTAL, 2 PREFILLED SYRINGES WITH XYLCAIN 2% 10G
     Route: 045
     Dates: start: 20140304, end: 20140304

REACTIONS (4)
  - Overdose [Recovered/Resolved]
  - Convulsion [Recovered/Resolved]
  - Acute respiratory failure [Recovered/Resolved]
  - Drug administration error [Recovered/Resolved]
